FAERS Safety Report 15813427 (Version 2)
Quarter: 2019Q1

REPORT INFORMATION
  Report Type: Report from Study
  Country: CN (occurrence: CN)
  Receive Date: 20190111
  Receipt Date: 20190301
  Transmission Date: 20190417
  Serious: Yes (Death, Hospitalization)
  Sender: FDA-Public Use
  Company Number: CN-CELGENEUS-CHN-20190100220

PATIENT
  Age: 59 Year
  Sex: Male
  Weight: 85 kg

DRUGS (14)
  1. BGB-A317/TISLELIZUMAB [Suspect]
     Active Substance: TISLELIZUMAB
     Indication: SQUAMOUS CELL CARCINOMA OF LUNG
     Dosage: 200 MILLIGRAM
     Route: 041
     Dates: start: 20181017
  2. CARBOPLATIN. [Suspect]
     Active Substance: CARBOPLATIN
     Indication: SQUAMOUS CELL CARCINOMA OF LUNG
     Dosage: 750 MILLIGRAM
     Route: 041
     Dates: start: 20181017
  3. COMPOUND LIQUORICE [Concomitant]
     Indication: PRODUCTIVE COUGH
     Dosage: 45 MILLILITER
     Route: 048
     Dates: start: 20181213, end: 20181228
  4. LOQUAT [Concomitant]
     Indication: PRODUCTIVE COUGH
     Dosage: 45 MILLILITER
     Route: 048
     Dates: start: 20181213, end: 20181228
  5. CARBOPLATIN. [Suspect]
     Active Substance: CARBOPLATIN
     Dosage: 750 MILLIGRAM
     Route: 041
     Dates: start: 20181107
  6. LEVAMLODIPINE BESILATE [Concomitant]
     Active Substance: LEVAMLODIPINE BESYLATE
     Indication: HYPERTENSION
     Dosage: 2.5 MILLIGRAM
     Route: 048
     Dates: start: 2008, end: 20181228
  7. ABRAXANE [Suspect]
     Active Substance: PACLITAXEL
     Indication: SQUAMOUS CELL CARCINOMA OF LUNG
     Dosage: 200 MILLIGRAM
     Route: 041
     Dates: start: 20181017
  8. DIHYDROXYPROPYLLINE [Concomitant]
     Indication: PRODUCT USED FOR UNKNOWN INDICATION
     Route: 030
  9. ABRAXANE [Suspect]
     Active Substance: PACLITAXEL
     Dosage: 200 MILLIGRAM
     Route: 041
     Dates: start: 20181128, end: 20181205
  10. ABRAXANE [Suspect]
     Active Substance: PACLITAXEL
     Dosage: 200 MILLIGRAM
     Route: 041
     Dates: start: 20181107
  11. BGB-A317/TISLELIZUMAB [Suspect]
     Active Substance: TISLELIZUMAB
     Dosage: 200 MILLIGRAM
     Route: 041
     Dates: start: 20181107
  12. BGB-A317/TISLELIZUMAB [Suspect]
     Active Substance: TISLELIZUMAB
     Dosage: 200 MILLIGRAM
     Route: 041
     Dates: start: 20181128, end: 20181128
  13. CARBOPLATIN. [Suspect]
     Active Substance: CARBOPLATIN
     Dosage: 750 MILLIGRAM
     Route: 041
     Dates: start: 20181128, end: 20181128
  14. TELMISARTAN. [Concomitant]
     Active Substance: TELMISARTAN
     Indication: HYPERTENSION
     Dosage: 40 MILLIGRAM
     Route: 048
     Dates: start: 2008, end: 20181228

REACTIONS (2)
  - Lung infection [Unknown]
  - Death [Fatal]

NARRATIVE: CASE EVENT DATE: 20181220
